FAERS Safety Report 8231004-9 (Version None)
Quarter: 2012Q1

REPORT INFORMATION
  Report Type: 
  Country: None (occurrence: None)
  Receive Date: 20120323
  Receipt Date: 20120316
  Transmission Date: 20120608
  Serious: Yes (Other)
  Sender: FDA-Public Use
  Company Number: JP-SANOFI-AVENTIS-2012SA018948

PATIENT
  Age: 79 Year
  Sex: Male

DRUGS (4)
  1. FLUOROURACIL [Suspect]
     Route: 041
     Dates: start: 20120305, end: 20120305
  2. FLUOROURACIL [Suspect]
     Indication: LARGE INTESTINE CARCINOMA
     Route: 040
     Dates: start: 20120305, end: 20120305
  3. LEUCOVORIN CALCIUM [Concomitant]
     Indication: LARGE INTESTINE CARCINOMA
     Route: 041
     Dates: start: 20120305, end: 20120305
  4. OXALIPLATIN [Suspect]
     Indication: LARGE INTESTINE CARCINOMA
     Route: 041
     Dates: start: 20120305, end: 20120305

REACTIONS (5)
  - HEPATIC FAILURE [None]
  - CONVULSION [None]
  - HYPOGLYCAEMIA [None]
  - HYPERAMMONAEMIA [None]
  - DEPRESSED LEVEL OF CONSCIOUSNESS [None]
